FAERS Safety Report 8950348 (Version 1)
Quarter: 2012Q4

REPORT INFORMATION
  Report Type: Spontaneous
  Country: US (occurrence: None)
  Receive Date: 20121130
  Receipt Date: 20121130
  Transmission Date: 20130627
  Serious: Yes (Other)
  Sender: FDA-Public Use
  Company Number: None

PATIENT
  Age: 67 Year
  Sex: Female

DRUGS (1)
  1. VOLTAREN [Suspect]
     Indication: ARTHRITIS
     Route: 061
     Dates: start: 20120912, end: 20120914

REACTIONS (4)
  - Abdominal pain upper [None]
  - Cardiac disorder [None]
  - Unevaluable event [None]
  - Memory impairment [None]
